FAERS Safety Report 5009122-8 (Version None)
Quarter: 2006Q2

REPORT INFORMATION
  Report Type: 
  Country: None (occurrence: None)
  Receive Date: 20060523
  Receipt Date: 20051007
  Transmission Date: 20061013
  Serious: Yes (Hospitalization)
  Sender: FDA-Public Use
  Company Number: SE-MERCK-0510SWE00006

PATIENT
  Age: 43 Year
  Sex: Female

DRUGS (5)
  1. HYZAAR [Suspect]
     Indication: HYPERTENSION
     Route: 048
     Dates: end: 20050201
  2. HYZAAR [Suspect]
     Route: 048
     Dates: start: 20050401, end: 20050802
  3. HYZAAR [Suspect]
     Route: 048
     Dates: start: 20060201
  4. LERCANIDIPINE HYDROCHLORIDE [Concomitant]
     Route: 048
     Dates: end: 20050201
  5. LERCANIDIPINE HYDROCHLORIDE [Concomitant]
     Route: 065
     Dates: start: 20050802

REACTIONS (1)
  - PULMONARY FIBROSIS [None]
